FAERS Safety Report 9408650 (Version 1)
Quarter: 2013Q3

REPORT INFORMATION
  Report Type: Spontaneous
  Country: US (occurrence: None)
  Receive Date: 20130716
  Receipt Date: 20130716
  Transmission Date: 20140515
  Serious: Yes (Hospitalization, Other)
  Sender: FDA-Public Use
  Company Number: CABO-13002929

PATIENT
  Age: 70 Year
  Sex: Female
  Weight: 52 kg

DRUGS (1)
  1. COMETRIQ (CABOZANTINIB) CAPSULE [Suspect]
     Indication: HEPATIC CANCER
     Route: 048
     Dates: start: 20130302, end: 20130614

REACTIONS (2)
  - Nausea [None]
  - Toxic shock syndrome [None]
